FAERS Safety Report 8566608-7 (Version None)
Quarter: 2012Q3

REPORT INFORMATION
  Report Type: 
  Country: None (occurrence: None)
  Receive Date: 20120730
  Receipt Date: 20120730
  Transmission Date: 20120928
  Serious: No
  Sender: FDA-Public Use
  Company Number: None

PATIENT
  Sex: Female

DRUGS (2)
  1. SUTENT [Suspect]
     Dosage: 37.5 MG DAILY, PO
     Route: 048
     Dates: start: 20120703, end: 20120725
  2. SUTENT [Suspect]
     Dosage: 37.5 MG, DAILY, PO
     Route: 048

REACTIONS (2)
  - ERYTHEMA [None]
  - PAIN IN EXTREMITY [None]
